FAERS Safety Report 7436662-4 (Version None)
Quarter: 2011Q2

REPORT INFORMATION
  Report Type: 
  Country: None (occurrence: None)
  Receive Date: 20110426
  Receipt Date: 20110418
  Transmission Date: 20111010
  Serious: Yes (Hospitalization)
  Sender: FDA-Public Use
  Company Number: US-JNJFOC-20110408249

PATIENT
  Sex: Female

DRUGS (7)
  1. ZOCOR [Concomitant]
  2. METFORMIN [Concomitant]
  3. LEVAQUIN [Suspect]
     Indication: POST PROCEDURAL INFECTION
     Route: 048
  4. VANCOMYCIN [Suspect]
     Indication: POST PROCEDURAL INFECTION
  5. LISINOPRIL [Concomitant]
  6. METOPROLOL [Concomitant]
  7. HYDROCHLOROTHIAZIDE [Concomitant]

REACTIONS (5)
  - STEVENS-JOHNSON SYNDROME [None]
  - RENAL FAILURE ACUTE [None]
  - DEPRESSION [None]
  - ACUTE GENERALISED EXANTHEMATOUS PUSTULOSIS [None]
  - ANXIETY [None]
